FAERS Safety Report 7239235-1 (Version None)
Quarter: 2011Q1

REPORT INFORMATION
  Report Type: 
  Country: None (occurrence: None)
  Receive Date: 20110121
  Receipt Date: 20110110
  Transmission Date: 20110831
  Serious: No
  Sender: FDA-Public Use
  Company Number: US-BAXTER-2010BH031128

PATIENT
  Age: 4 Year
  Sex: Female
  Weight: 20 kg

DRUGS (3)
  1. CLINDAMYCIN [Concomitant]
     Indication: PNEUMONIA
     Route: 042
     Dates: start: 20101229
  2. DEXAMETHASONE [Suspect]
     Indication: DYSPNOEA
     Route: 042
     Dates: start: 20101229, end: 20101229
  3. DEXAMETHASONE [Suspect]
     Indication: COUGH
     Route: 042
     Dates: start: 20101229, end: 20101229

REACTIONS (2)
  - PAIN [None]
  - CRYING [None]
